FAERS Safety Report 8170775-7 (Version None)
Quarter: 2012Q1

REPORT INFORMATION
  Report Type: 
  Country: None (occurrence: None)
  Receive Date: 20120228
  Receipt Date: 20120225
  Transmission Date: 20120608
  Serious: Yes (Other)
  Sender: FDA-Public Use
  Company Number: US-PFIZER INC-2012050036

PATIENT
  Sex: Female
  Weight: 65.76 kg

DRUGS (3)
  1. ATENOLOL [Concomitant]
     Indication: TACHYCARDIA
     Dosage: HALF TABLET OF 25 MG, DAILY
  2. POTASSIUM [Concomitant]
     Indication: RENAL FAILURE
     Dosage: 20 UG, DAILY
  3. LYRICA [Suspect]
     Indication: FIBROMYALGIA
     Dosage: UNK

REACTIONS (3)
  - FIBROMYALGIA [None]
  - CHEST DISCOMFORT [None]
  - CHEST PAIN [None]
